FAERS Safety Report 6099362-1 (Version None)
Quarter: 2009Q1

REPORT INFORMATION
  Report Type: 
  Country: None (occurrence: None)
  Receive Date: 20090226
  Receipt Date: 20090226
  Transmission Date: 20090719
  Serious: No
  Sender: FDA-Public Use
  Company Number: None

PATIENT
  Age: 20 Year
  Sex: Male
  Weight: 74 kg

DRUGS (2)
  1. DEXCHLORPHENRAMINE [Suspect]
     Dates: start: 20090222, end: 20090222
  2. DEXTROMETHORPHAN [Suspect]
     Dates: start: 20090222, end: 20090222

REACTIONS (11)
  - AGITATION [None]
  - CONFUSIONAL STATE [None]
  - DIZZINESS [None]
  - DRUG ABUSE [None]
  - HYPERHIDROSIS [None]
  - HYPERTENSION [None]
  - MEMORY IMPAIRMENT [None]
  - OVERDOSE [None]
  - PALPITATIONS [None]
  - TACHYCARDIA [None]
  - TACHYPNOEA [None]
